FAERS Safety Report 13374912 (Version 5)
Quarter: 2017Q2

REPORT INFORMATION
  Report Type: Report from Study
  Country: BE (occurrence: BE)
  Receive Date: 20170327
  Receipt Date: 20170426
  Transmission Date: 20170830
  Serious: Yes (Death, Life-Threatening)
  Sender: FDA-Public Use
  Company Number: BE-ASTRAZENECA-2017SE31922

PATIENT
  Age: 25502 Day
  Sex: Female
  Weight: 70.1 kg

DRUGS (7)
  1. TEMESTA EXP [Concomitant]
     Active Substance: LORAZEPAM
     Route: 048
     Dates: start: 20150210
  2. FEMARA [Suspect]
     Active Substance: LETROZOLE
     Indication: NEOPLASM
     Route: 048
     Dates: start: 20150423
  3. AZD2281 [Suspect]
     Active Substance: OLAPARIB
     Indication: NEOPLASM
     Route: 048
     Dates: start: 20141202, end: 20160421
  4. AZD2281 [Suspect]
     Active Substance: OLAPARIB
     Indication: NEOPLASM
     Route: 048
     Dates: start: 20160421, end: 20170323
  5. ATENDOL [Concomitant]
     Active Substance: ATENOLOL
     Route: 048
     Dates: start: 20161229
  6. AZD2281 [Suspect]
     Active Substance: OLAPARIB
     Indication: NEOPLASM
     Route: 048
     Dates: start: 20141016, end: 20141202
  7. INDAPAMIDE. [Concomitant]
     Active Substance: INDAPAMIDE
     Dates: start: 20161229

REACTIONS (1)
  - Acute myeloid leukaemia [Fatal]

NARRATIVE: CASE EVENT DATE: 20170323
